FAERS Safety Report 15371565 (Version 2)
Quarter: 2018Q4

REPORT INFORMATION
  Report Type: Spontaneous
  Country: JP (occurrence: JP)
  Receive Date: 20180911
  Receipt Date: 20181120
  Transmission Date: 20190204
  Serious: Yes (Other)
  Sender: FDA-Public Use
  Company Number: PHJP2018JP016200

PATIENT
  Age: 52 Year
  Sex: Male

DRUGS (3)
  1. BIPERIDEN [Concomitant]
     Active Substance: BIPERIDEN
     Indication: PRODUCT USED FOR UNKNOWN INDICATION
     Dosage: UNK
     Route: 065
  2. TEGRETOL [Suspect]
     Active Substance: CARBAMAZEPINE
     Indication: PAIN
     Dosage: UNK
     Route: 048
  3. PERPHENAZINE. [Concomitant]
     Active Substance: PERPHENAZINE
     Indication: PRODUCT USED FOR UNKNOWN INDICATION
     Dosage: UNK
     Route: 065

REACTIONS (7)
  - Carcinoid tumour of the small bowel [Unknown]
  - Hypoaesthesia [Unknown]
  - Hypohidrosis [Unknown]
  - Spinal cord injury thoracic [Unknown]
  - Neuropathy peripheral [Unknown]
  - Abdominal pain lower [Unknown]
  - Complex regional pain syndrome [Unknown]
